FAERS Safety Report 6978380-2 (Version None)
Quarter: 2010Q3

REPORT INFORMATION
  Report Type: 
  Country: None (occurrence: None)
  Receive Date: 20100913
  Receipt Date: 20100901
  Transmission Date: 20110219
  Serious: Yes (Other)
  Sender: FDA-Public Use
  Company Number: JP-PFIZER INC-2010109894

PATIENT
  Age: 65 Year
  Sex: Male

DRUGS (4)
  1. RIFABUTIN [Suspect]
     Indication: PULMONARY TUBERCULOSIS
     Dosage: UNK
     Route: 048
     Dates: start: 20100101
  2. P.A.S. [Concomitant]
  3. ETHIONAMIDE [Concomitant]
  4. MFLX [Concomitant]

REACTIONS (1)
  - HYPOTHYROIDISM [None]
